FAERS Safety Report 4309900-4 (Version None)
Quarter: 2004Q1

REPORT INFORMATION
  Report Type: 
  Country: None (occurrence: None)
  Receive Date: 20040303
  Receipt Date: 20040121
  Transmission Date: 20041129
  Serious: No
  Sender: FDA-Public Use
  Company Number: US-BRISTOL-MYERS SQUIBB COMPANY-12483335

PATIENT
  Age: 45 Year
  Sex: Male
  Weight: 74 kg

DRUGS (6)
  1. ABILIFY [Suspect]
     Indication: BIPOLAR DISORDER
     Route: 048
     Dates: start: 20031201
  2. ABILIFY [Suspect]
     Indication: PERVASIVE DEVELOPMENTAL DISORDER
     Route: 048
     Dates: start: 20031201
  3. KLONOPIN [Concomitant]
  4. LEVOXYL [Concomitant]
     Indication: THYROID FUNCTION TEST ABNORMAL
  5. DEPAKOTE [Concomitant]
  6. LUVOX [Concomitant]

REACTIONS (5)
  - AGGRESSION [None]
  - ASTHENIA [None]
  - BALANCE DISORDER [None]
  - DISORIENTATION [None]
  - INSOMNIA [None]
